FAERS Safety Report 10479103 (Version 2)
Quarter: 2014Q4

REPORT INFORMATION
  Report Type: Report from Study
  Country: MX (occurrence: MX)
  Receive Date: 20140926
  Receipt Date: 20141011
  Transmission Date: 20150528
  Serious: Yes (Hospitalization, Other)
  Sender: FDA-Public Use
  Company Number: PHHY2014MX126035

PATIENT
  Age: 66 Year
  Sex: Female

DRUGS (3)
  1. DIOVAN [Suspect]
     Active Substance: VALSARTAN
     Indication: HYPERTENSION
     Dosage: 1 DF DAILY
     Route: 048
     Dates: start: 201408
  2. METOPROLOL TARTRATE. [Concomitant]
     Active Substance: METOPROLOL TARTRATE
     Indication: HYPERTENSION
     Dosage: 0.5 UKN, DAILY
     Route: 065
     Dates: start: 2004
  3. CO-DIOVAN [Suspect]
     Active Substance: HYDROCHLOROTHIAZIDE\VALSARTAN
     Indication: HYPERTENSION
     Dosage: 1 DF DAILY
     Route: 048
     Dates: end: 201408

REACTIONS (11)
  - Hepatic function abnormal [Recovered/Resolved]
  - Renal impairment [Recovered/Resolved]
  - Food poisoning [Recovered/Resolved]
  - Hypotension [Unknown]
  - Ketoacidosis [Recovered/Resolved]
  - Pancreatic disorder [Recovered/Resolved]
  - Dehydration [Recovered/Resolved]
  - Loss of consciousness [Recovered/Resolved]
  - Metabolic syndrome [Unknown]
  - Diabetes mellitus [Unknown]
  - Diarrhoea [Recovered/Resolved]

NARRATIVE: CASE EVENT DATE: 201406
